FAERS Safety Report 5868638-2 (Version None)
Quarter: 2008Q3

REPORT INFORMATION
  Report Type: 
  Country: None (occurrence: None)
  Receive Date: 20080903
  Receipt Date: 20060528
  Transmission Date: 20090109
  Serious: Yes (Other)
  Sender: FDA-Public Use
  Company Number: US-BAYER-200830677NA

PATIENT
  Sex: Female

DRUGS (5)
  1. AVELOX [Suspect]
     Indication: DRUG USE FOR UNKNOWN INDICATION
     Dosage: TOTAL DAILY DOSE: 400 MG  UNIT DOSE: 400 MG
  2. LIPITOR [Concomitant]
     Dosage: UNIT DOSE: 10 MG
     Dates: start: 20030101
  3. NASAL WASH [Concomitant]
  4. PULMICORT-100 [Concomitant]
  5. NASONEX [Concomitant]
     Dosage: TOTAL DAILY DOSE: 200 ?G

REACTIONS (11)
  - AGITATION [None]
  - DIZZINESS [None]
  - EYE SWELLING [None]
  - HEART RATE INCREASED [None]
  - HYPERSENSITIVITY [None]
  - LIP SWELLING [None]
  - PAIN IN EXTREMITY [None]
  - PRURITUS [None]
  - THIRST [None]
  - VISUAL IMPAIRMENT [None]
  - YELLOW SKIN [None]
